FAERS Safety Report 21527885 (Version 1)
Quarter: 2022Q4

REPORT INFORMATION
  Report Type: Report from Study
  Country: US (occurrence: US)
  Receive Date: 20221031
  Receipt Date: 20221031
  Transmission Date: 20230113
  Serious: No
  Sender: FDA-Public Use
  Company Number: US-ABBVIE-4167044

PATIENT
  Sex: Female

DRUGS (5)
  1. SKYRIZI [Suspect]
     Active Substance: RISANKIZUMAB-RZAA
     Indication: Psoriasis
     Route: 058
  2. Moderna [Concomitant]
     Indication: COVID-19 immunisation
     Dosage: FREQUENCY-ONE IN ONCE?1ST DOSE
     Route: 030
     Dates: start: 20210422, end: 20210422
  3. Moderna [Concomitant]
     Indication: COVID-19 immunisation
     Dosage: 2ND DOSE?FREQUENCY-ONE IN ONCE
     Route: 030
     Dates: start: 20211207, end: 20211207
  4. Moderna [Concomitant]
     Indication: COVID-19 immunisation
     Dosage: 3RD DOSE?FREQUENCY-ONE IN ONCE
     Route: 030
     Dates: start: 20220613, end: 20220613
  5. DOXYCYCLINE [Concomitant]
     Active Substance: DOXYCYCLINE
     Indication: Product used for unknown indication

REACTIONS (3)
  - Psoriasis [Not Recovered/Not Resolved]
  - Eczema [Not Recovered/Not Resolved]
  - Skin exfoliation [Recovered/Resolved]
